FAERS Safety Report 17841969 (Version 1)
Quarter: 2020Q2

REPORT INFORMATION
  Report Type: Report from Study
  Country: MX (occurrence: MX)
  Receive Date: 20200529
  Receipt Date: 20200529
  Transmission Date: 20200714
  Serious: Yes (Other)
  Sender: FDA-Public Use
  Company Number: NVSC2020MX148867

PATIENT
  Sex: Male
  Weight: 73 kg

DRUGS (1)
  1. TRAVATAN [Suspect]
     Active Substance: TRAVOPROST
     Indication: GLAUCOMA
     Dosage: 1 DF, QD (2.5ML)
     Route: 047

REACTIONS (4)
  - Deafness unilateral [Unknown]
  - Hypoacusis [Unknown]
  - Glucose tolerance impaired [Unknown]
  - Hypertension [Unknown]
